FAERS Safety Report 10795260 (Version 1)
Quarter: 2015Q1

REPORT INFORMATION
  Report Type: Spontaneous
  Country: US (occurrence: US)
  Receive Date: 20150214
  Receipt Date: 20150214
  Transmission Date: 20150721
  Serious: No
  Sender: FDA-Public Use
  Company Number: US-GLAXOSMITHKLINE-A1070482A

PATIENT

DRUGS (3)
  1. IMMUNOGLOBULIN [Concomitant]
     Active Substance: HUMAN IMMUNOGLOBULIN G
  2. BLOOD PRESSURE MEDICATION [Concomitant]
     Active Substance: UNSPECIFIED INGREDIENT
  3. VENTOLIN [Suspect]
     Active Substance: ALBUTEROL SULFATE
     Indication: BRONCHIECTASIS
     Route: 055
     Dates: start: 201305

REACTIONS (4)
  - Cough [Unknown]
  - Drug ineffective [Unknown]
  - Productive cough [Unknown]
  - Product quality issue [Unknown]

NARRATIVE: CASE EVENT DATE: 201404
